FAERS Safety Report 10199288 (Version 4)
Quarter: 2014Q2

REPORT INFORMATION
  Report Type: Report from Study
  Country: ES (occurrence: ES)
  Receive Date: 20140527
  Receipt Date: 20140623
  Transmission Date: 20141212
  Serious: Yes (Hospitalization)
  Sender: FDA-Public Use
  Company Number: PHHO2014ES007522

PATIENT
  Sex: 0

DRUGS (13)
  1. BLINDED LUCENTIS [Suspect]
     Indication: MACULAR OEDEMA
     Dosage: CODE NOT BROKEN
     Route: 031
     Dates: start: 20140425, end: 20140425
  2. BLINDED NO TREATMENT RECEIVED [Suspect]
     Indication: MACULAR OEDEMA
     Dosage: CODE NOT BROKEN
     Route: 031
     Dates: start: 20140425, end: 20140425
  3. BLINDED PLACEBO [Suspect]
     Indication: MACULAR OEDEMA
     Dosage: CODE NOT BROKEN
     Route: 031
     Dates: start: 20140425, end: 20140425
  4. BLINDED LUCENTIS [Suspect]
     Dosage: CODE NOT BROKEN
     Route: 031
     Dates: start: 20140502, end: 20140502
  5. BLINDED NO TREATMENT RECEIVED [Suspect]
     Dosage: CODE NOT BROKEN
     Route: 031
     Dates: start: 20140502, end: 20140502
  6. BLINDED PLACEBO [Suspect]
     Dosage: CODE NOT BROKEN
     Route: 031
     Dates: start: 20140502, end: 20140502
  7. ACETYLSALICYLIC ACID [Concomitant]
     Indication: ISCHAEMIC CARDIOMYOPATHY
     Dosage: 100 MG, QD
     Route: 048
  8. ATORVASTATIN [Concomitant]
     Indication: DYSLIPIDAEMIA
     Dosage: 40 MG, QD
     Route: 048
  9. BISOPROLOL [Concomitant]
     Indication: HYPERTENSION
     Dosage: 10 MG, QD
     Route: 048
  10. DIAMICRON [Concomitant]
     Indication: TYPE 2 DIABETES MELLITUS
     Dosage: 30 MG, QD
     Route: 048
  11. ENALAPRIL [Concomitant]
     Indication: HYPERTENSION
     Dosage: 10 MG, BID
     Route: 048
  12. TORASEMIDE [Concomitant]
     Indication: HYPERTENSION
     Dosage: 5 MG, QD
     Route: 048
  13. ZOMARIST                           /06202201/ [Concomitant]
     Indication: TYPE 2 DIABETES MELLITUS
     Dosage: 1 DF (50/1000 MG), BID
     Route: 048

REACTIONS (1)
  - Meningioma benign [Not Recovered/Not Resolved]
